FAERS Safety Report 9476376 (Version 1)
Quarter: 2013Q3

REPORT INFORMATION
  Report Type: Spontaneous
  Country: US (occurrence: None)
  Receive Date: 20130823
  Receipt Date: 20130823
  Transmission Date: 20140515
  Serious: No
  Sender: FDA-Public Use
  Company Number: None

PATIENT
  Age: 60 Year
  Sex: Male
  Weight: 82 kg

DRUGS (1)
  1. DEFINITY [Suspect]
     Indication: DIAGNOSTIC PROCEDURE
     Dates: start: 20130822, end: 20130822

REACTIONS (1)
  - Muscle spasms [None]
